FAERS Safety Report 7808548-4 (Version None)
Quarter: 2011Q4

REPORT INFORMATION
  Report Type: 
  Country: None (occurrence: None)
  Receive Date: 20111012
  Receipt Date: 20110930
  Transmission Date: 20120403
  Serious: Yes (Other)
  Sender: FDA-Public Use
  Company Number: GB-JNJFOC-20111003966

PATIENT
  Sex: Male

DRUGS (1)
  1. TRAMADOL HCL [Suspect]
     Indication: PRODUCT USED FOR UNKNOWN INDICATION
     Route: 048
     Dates: start: 20110930

REACTIONS (2)
  - SUICIDE ATTEMPT [None]
  - INTENTIONAL OVERDOSE [None]
